FAERS Safety Report 5569845-9 (Version None)
Quarter: 2007Q4

REPORT INFORMATION
  Report Type: 
  Country: None (occurrence: None)
  Receive Date: 20071217
  Receipt Date: 20071204
  Transmission Date: 20080405
  Serious: Yes (Death, Other)
  Sender: FDA-Public Use
  Company Number: 36951-2

PATIENT
  Age: 76 Year
  Sex: Male

DRUGS (1)
  1. ETOPOSIDE [Suspect]
     Indication: SMALL CELL LUNG CANCER STAGE UNSPECIFIED
     Dosage: INTRAVENOUS
     Route: 042
     Dates: start: 20070420

REACTIONS (5)
  - ASPIRATION [None]
  - CARDIOPULMONARY FAILURE [None]
  - COUGH [None]
  - RESPIRATORY DISTRESS [None]
  - VOMITING [None]
